FAERS Safety Report 9815480 (Version 4)
Quarter: 2014Q2

REPORT INFORMATION
  Report Type: Spontaneous
  Country: US (occurrence: US)
  Receive Date: 20140114
  Receipt Date: 20140428
  Transmission Date: 20141212
  Serious: No
  Sender: FDA-Public Use
  Company Number: US-PFIZER INC-2014009170

PATIENT
  Age: 72 Year
  Sex: Female
  Weight: 52.15 kg

DRUGS (1)
  1. ATORVASTATIN CALCIUM [Suspect]
     Dosage: UNK

REACTIONS (4)
  - Heart rate abnormal [Unknown]
  - Drug hypersensitivity [Unknown]
  - Blood pressure increased [Unknown]
  - Headache [Unknown]
